FAERS Safety Report 8602826-7 (Version None)
Quarter: 2012Q3

REPORT INFORMATION
  Report Type: 
  Country: None (occurrence: None)
  Receive Date: 20120817
  Receipt Date: 20120809
  Transmission Date: 20120928
  Serious: Yes (Hospitalization)
  Sender: FDA-Public Use
  Company Number: US-ABBOTT-12P-163-0967204-00

PATIENT
  Age: 45 Year
  Sex: Female

DRUGS (7)
  1. TRAMADOL HCL [Concomitant]
     Indication: PRODUCT USED FOR UNKNOWN INDICATION
     Dosage: UP TO 4 TABLETS DAILY AS NEEDED
  2. SYNTHROID [Concomitant]
     Indication: HYPOTHYROIDISM
     Dosage: 0.05MCG DAILY
  3. PROTONIX [Concomitant]
     Indication: PRODUCT USED FOR UNKNOWN INDICATION
  4. HUMIRA [Suspect]
     Indication: CROHN'S DISEASE
  5. NORCO [Concomitant]
     Indication: PRODUCT USED FOR UNKNOWN INDICATION
  6. AMBIEN [Concomitant]
     Indication: PRODUCT USED FOR UNKNOWN INDICATION
  7. PROAIR HFA [Concomitant]
     Indication: PRODUCT USED FOR UNKNOWN INDICATION
     Route: 055

REACTIONS (14)
  - MALNUTRITION [None]
  - INJECTION SITE PAIN [None]
  - CROHN'S DISEASE [None]
  - ABDOMINAL PAIN [None]
  - HYPOTHYROIDISM [None]
  - CHEST PAIN [None]
  - NAUSEA [None]
  - ABDOMINAL DISTENSION [None]
  - HYPONATRAEMIA [None]
  - DEHYDRATION [None]
  - HYPERGLYCAEMIA [None]
  - BACTERIAL TEST [None]
  - HAEMATOCHEZIA [None]
  - WHITE BLOOD CELL COUNT INCREASED [None]
